APPROVED DRUG PRODUCT: ELETRIPTAN HYDROBROMIDE
Active Ingredient: ELETRIPTAN HYDROBROMIDE
Strength: EQ 40MG BASE
Dosage Form/Route: TABLET;ORAL
Application: A219143 | Product #002 | TE Code: AB
Applicant: ANNORA PHARMA PRIVATE LTD
Approved: Jul 7, 2025 | RLD: No | RS: No | Type: RX